FAERS Safety Report 4548733-0 (Version None)
Quarter: 2005Q1

REPORT INFORMATION
  Report Type: 
  Country: None (occurrence: None)
  Receive Date: 20050107
  Receipt Date: 20050107
  Transmission Date: 20050727
  Serious: Yes (Other)
  Sender: FDA-Public Use
  Company Number: None

PATIENT
  Sex: Male

DRUGS (3)
  1. ZESTORETIC [Suspect]
     Indication: HYPERTENSION
     Dosage: 1 QD
  2. PREVACID [Concomitant]
  3. NORVASC [Concomitant]

REACTIONS (2)
  - CARDIAC FLUTTER [None]
  - PHARMACEUTICAL PRODUCT COMPLAINT [None]
